FAERS Safety Report 16225173 (Version 2)
Quarter: 2019Q2

REPORT INFORMATION
  Report Type: Spontaneous
  Country: US (occurrence: US)
  Receive Date: 20190422
  Receipt Date: 20190508
  Transmission Date: 20190711
  Serious: No
  Sender: FDA-Public Use
  Company Number: US-009507513-1904USA004194

PATIENT
  Sex: Female
  Weight: 61.23 kg

DRUGS (1)
  1. NEXPLANON [Suspect]
     Active Substance: ETONOGESTREL
     Indication: CONTRACEPTION
     Dosage: 1 IMPLANT, 3 YEARS, LEFT ARM
     Route: 059

REACTIONS (4)
  - Menorrhagia [Unknown]
  - Psychopathic personality [Unknown]
  - Mood altered [Unknown]
  - Abdominal pain [Unknown]
